FAERS Safety Report 5354746-1 (Version None)
Quarter: 2007Q2

REPORT INFORMATION
  Report Type: 
  Country: None (occurrence: None)
  Receive Date: 20070611
  Receipt Date: 20070601
  Transmission Date: 20071010
  Serious: Yes (Hospitalization)
  Sender: FDA-Public Use
  Company Number: 2007SP010880

PATIENT
  Age: 76 Year
  Sex: Female
  Weight: 65 kg

DRUGS (4)
  1. TEMODAL [Suspect]
     Indication: GLIOBLASTOMA
  2. GLYBURIDE [Suspect]
     Indication: DIABETES MELLITUS
     Dates: start: 20070529
  3. GLUCOPHAGE [Suspect]
     Indication: DRUG USE FOR UNKNOWN INDICATION
     Dates: start: 20070529
  4. COTRIM FORTE (CON.) [Concomitant]

REACTIONS (5)
  - DEPRESSION [None]
  - DRUG LEVEL BELOW THERAPEUTIC [None]
  - HYPERKALAEMIA [None]
  - HYPERTENSION [None]
  - HYPOGLYCAEMIA [None]
